FAERS Safety Report 4698269-1 (Version None)
Quarter: 2005Q2

REPORT INFORMATION
  Report Type: 
  Country: None (occurrence: None)
  Receive Date: 20050621
  Receipt Date: 20050607
  Transmission Date: 20051028
  Serious: Yes (Other)
  Sender: FDA-Public Use
  Company Number: 8023

PATIENT
  Sex: Male
  Weight: 86.1834 kg

DRUGS (2)
  1. SEPTOCAINE [Suspect]
     Indication: LOCAL ANAESTHESIA
     Dosage: 3/4 OF CARPULE INJECTED
  2. 10% CETACAINE [Suspect]
     Indication: LOCAL ANAESTHESIA
     Dosage: TOPICAL
     Route: 061

REACTIONS (1)
  - PARAESTHESIA [None]
